FAERS Safety Report 19610948 (Version 1)
Quarter: 2021Q3

REPORT INFORMATION
  Report Type: Spontaneous
  Country: GB (occurrence: GB)
  Receive Date: 20210726
  Receipt Date: 20210726
  Transmission Date: 20211014
  Serious: Yes (Congenital Anomaly, Other)
  Sender: FDA-Public Use
  Company Number: GB-MYLANLABS-2021M1045452

PATIENT

DRUGS (2)
  1. LEVETIRACETAM. [Suspect]
     Active Substance: LEVETIRACETAM
     Indication: EPILEPSY
     Dosage: 250 MILLIGRAM, BID
     Route: 064
     Dates: start: 202001
  2. LAMOTRIGIN [Concomitant]
     Active Substance: LAMOTRIGINE
     Dosage: UNK
     Route: 064
     Dates: end: 202001

REACTIONS (4)
  - Foetal cystic hygroma [Unknown]
  - Turner^s syndrome [Unknown]
  - Congenital cardiovascular anomaly [Unknown]
  - Foetal exposure during pregnancy [Recovered/Resolved]
